FAERS Safety Report 4785959-5 (Version None)
Quarter: 2005Q3

REPORT INFORMATION
  Report Type: 
  Country: None (occurrence: None)
  Receive Date: 20050930
  Receipt Date: 20050915
  Transmission Date: 20060218
  Serious: Yes (Hospitalization)
  Sender: FDA-Public Use
  Company Number: 2005RR-00756

PATIENT
  Age: 48 Year
  Sex: Male

DRUGS (6)
  1. ASPIRIN (ASPIRIN, ASPIRIN) UNKNOWN [Suspect]
     Dosage: 75 MG, QD,ORAL
     Route: 048
     Dates: end: 20050828
  2. IBUPROFEN [Suspect]
     Dosage: 400 MG, Q4H, ORAL
     Route: 048
  3. DOXAZOSIN [Concomitant]
  4. BENZAFIBRATE [Concomitant]
  5. ALLOPURINOL [Concomitant]
  6. IRBESARTAN AND HYDROCHLOROTHIAZIDE [Concomitant]

REACTIONS (2)
  - GASTRITIS [None]
  - GASTROINTESTINAL HAEMORRHAGE [None]
